FAERS Safety Report 5051155-X (Version None)
Quarter: 2006Q3

REPORT INFORMATION
  Report Type: 
  Country: None (occurrence: None)
  Receive Date: 20060714
  Receipt Date: 20060703
  Transmission Date: 20061208
  Serious: Yes (Other)
  Sender: FDA-Public Use
  Company Number: US-NOVOPROD-254665

PATIENT
  Age: 56 Year
  Sex: Female

DRUGS (3)
  1. VAGIFEM [Suspect]
     Indication: VULVOVAGINAL DRYNESS
     Dosage: 1 TAB, QD
     Route: 067
     Dates: start: 19990101, end: 20060601
  2. MENEST                             /00073001/ [Concomitant]
     Indication: MENOPAUSAL SYMPTOMS
     Dosage: .5 TAB, UNK
     Route: 048
     Dates: start: 19990101, end: 20060101
  3. PROMETRIUM [Concomitant]
     Indication: MENOPAUSAL SYMPTOMS
     Dosage: 1 TAB, UNK
     Route: 048
     Dates: start: 19990101, end: 20060101

REACTIONS (2)
  - BREAST CANCER [None]
  - BREAST CANCER FEMALE [None]
